FAERS Safety Report 20840218 (Version 1)
Quarter: 2022Q2

REPORT INFORMATION
  Report Type: Spontaneous
  Country: CH (occurrence: CH)
  Receive Date: 20220517
  Receipt Date: 20220517
  Transmission Date: 20220721
  Serious: Yes (Other)
  Sender: FDA-Public Use
  Company Number: CH-ABBVIE-22K-151-4397452-00

PATIENT
  Sex: Male
  Weight: 75 kg

DRUGS (4)
  1. LEUPROLIDE ACETATE [Suspect]
     Active Substance: LEUPROLIDE ACETATE
     Indication: Prostate cancer
     Route: 058
     Dates: start: 20210409
  2. ZYTIGA [Suspect]
     Active Substance: ABIRATERONE ACETATE
     Indication: Prostate cancer
     Route: 048
     Dates: start: 20210705, end: 20211119
  3. ZYTIGA [Suspect]
     Active Substance: ABIRATERONE ACETATE
     Route: 048
     Dates: start: 20211119
  4. PREDNISONE [Concomitant]
     Active Substance: PREDNISONE
     Indication: Prostate cancer metastatic
     Dates: start: 202107

REACTIONS (6)
  - Idiopathic intracranial hypertension [Unknown]
  - Ischaemic stroke [Recovered/Resolved]
  - Cerebrovascular accident [Unknown]
  - Hypertension [Not Recovered/Not Resolved]
  - Obstructive sleep apnoea syndrome [Unknown]
  - Headache [Unknown]

NARRATIVE: CASE EVENT DATE: 20210101
